FAERS Safety Report 14687555 (Version 2)
Quarter: 2020Q1

REPORT INFORMATION
  Report Type: Spontaneous
  Country: US (occurrence: US)
  Receive Date: 20180328
  Receipt Date: 20200303
  Transmission Date: 20200409
  Serious: Yes (Hospitalization, Other)
  Sender: FDA-Public Use
  Company Number: US-NOVEN PHARMACEUTICALS, INC.-US2018000167

PATIENT

DRUGS (11)
  1. TIROSINT [Suspect]
     Active Substance: LEVOTHYROXINE SODIUM
     Dosage: 0.50 ?G, MORNING
     Route: 048
  2. TIROSINT [Suspect]
     Active Substance: LEVOTHYROXINE SODIUM
     Dosage: 1.5 ?G, MORNING
     Route: 048
  3. DILAUDID [Suspect]
     Active Substance: HYDROMORPHONE HYDROCHLORIDE
     Indication: PRODUCT USED FOR UNKNOWN INDICATION
  4. MINIVELLE [Suspect]
     Active Substance: ESTRADIOL
     Indication: OFF LABEL USE
  5. MINIVELLE [Suspect]
     Active Substance: ESTRADIOL
     Indication: VAGINAL INFECTION
     Dosage: 0.0375 MG, UNKNOWN
     Route: 062
     Dates: start: 2012
  6. ZINC. [Suspect]
     Active Substance: ZINC
     Indication: EYE DISORDER
     Dosage: 250 MG, UNK
  7. MAGNESIUM OXIDE. [Suspect]
     Active Substance: MAGNESIUM OXIDE
     Indication: CONSTIPATION
     Dosage: 1000 MG, UNK
  8. TIROSINT [Suspect]
     Active Substance: LEVOTHYROXINE SODIUM
     Dosage: 0.30 ?G, MORNING
     Route: 048
  9. LIOTHYRONINE SODIUM. [Suspect]
     Active Substance: LIOTHYRONINE SODIUM
     Indication: HYPOTHYROIDISM
  10. TIROSINT [Suspect]
     Active Substance: LEVOTHYROXINE SODIUM
     Indication: HYPOTHYROIDISM
     Dosage: 0.75 ?G, MORNING
     Route: 048
  11. OXYCODONE [Concomitant]
     Active Substance: OXYCODONE
     Indication: PAIN MANAGEMENT
     Dosage: 7.5 MG, UNK

REACTIONS (17)
  - Cartilage injury [Unknown]
  - Hypothyroidism [Recovered/Resolved]
  - Nausea [Unknown]
  - Osteoarthritis [Not Recovered/Not Resolved]
  - Device related infection [Unknown]
  - Fall [Recovered/Resolved]
  - Vaginal infection [Recovered/Resolved]
  - Gait disturbance [Unknown]
  - Vomiting [Unknown]
  - Femoral nerve injury [Unknown]
  - Hypokinesia [Recovered/Resolved]
  - Meniscus injury [Recovered/Resolved]
  - Tendon injury [Not Recovered/Not Resolved]
  - Road traffic accident [Recovered/Resolved]
  - Off label use [Not Recovered/Not Resolved]
  - Hyperthyroidism [Recovered/Resolved]
  - Constipation [Recovered/Resolved]

NARRATIVE: CASE EVENT DATE: 2012
